FAERS Safety Report 6649821-5 (Version None)
Quarter: 2010Q1

REPORT INFORMATION
  Report Type: 
  Country: None (occurrence: None)
  Receive Date: 20100325
  Receipt Date: 20100310
  Transmission Date: 20100710
  Serious: Yes (Hospitalization)
  Sender: FDA-Public Use
  Company Number: US-MYLANLABS-2010S1004030

PATIENT
  Age: 70 Year
  Sex: Male

DRUGS (7)
  1. SORAFENIB [Interacting]
     Indication: HEPATIC NEOPLASM MALIGNANT
     Dosage: 200 MG/DAY
     Route: 048
     Dates: start: 20070921
  2. WARFARIN SODIUM [Suspect]
     Indication: ANTICOAGULANT THERAPY
     Dosage: 36MG WEEKLY
     Route: 048
     Dates: start: 20070401
  3. ESOMEPRAZOLE [Concomitant]
     Dosage: 40 MG/DAY
     Route: 048
  4. DIGOXIN [Concomitant]
     Dosage: 0.125 MG/SAY
     Route: 048
  5. ASPIRIN [Concomitant]
     Dosage: 325 MG/DAY
     Route: 048
  6. METOPROLOL [Concomitant]
     Dosage: 100MG TWICE DAILY
     Route: 048
  7. FUROSEMIDE [Concomitant]
     Dosage: 40 MG/DAY
     Route: 048

REACTIONS (3)
  - DRUG INTERACTION [None]
  - HAEMORRHAGE [None]
  - INTERNATIONAL NORMALISED RATIO INCREASED [None]
